FAERS Safety Report 11824703 (Version 3)
Quarter: 2016Q1

REPORT INFORMATION
  Report Type: Report from Study
  Country: CN (occurrence: CN)
  Receive Date: 20151210
  Receipt Date: 20160129
  Transmission Date: 20160525
  Serious: Yes (Hospitalization, Other)
  Sender: FDA-Public Use
  Company Number: CN-CELGENE-CHN-2015117865

PATIENT
  Age: 54 Year
  Sex: Male
  Weight: 81 kg

DRUGS (13)
  1. CC-5013 [Suspect]
     Active Substance: LENALIDOMIDE
     Indication: PLASMA CELL MYELOMA
     Route: 048
  2. ASPIRIN. [Concomitant]
     Active Substance: ASPIRIN
     Indication: THROMBOSIS PROPHYLAXIS
     Route: 048
     Dates: start: 20150706
  3. VITAMIN D3 [Concomitant]
     Active Substance: CHOLECALCIFEROL
     Indication: OSTEOPOROSIS
     Route: 048
     Dates: start: 20131028
  4. CC-5013 [Suspect]
     Active Substance: LENALIDOMIDE
     Dosage: 1.5 GRAM
     Route: 048
     Dates: start: 20151123
  5. DEXAMETHASONE. [Suspect]
     Active Substance: DEXAMETHASONE
     Indication: PLASMA CELL MYELOMA
     Route: 065
  6. DEXAMETHASONE. [Suspect]
     Active Substance: DEXAMETHASONE
     Dosage: 4 MILLIGRAM
     Route: 065
     Dates: end: 20151123
  7. ZOLEDRONIC ACID [Concomitant]
     Active Substance: ZOLEDRONIC ACID
     Indication: PROPHYLAXIS
     Route: 041
     Dates: start: 20151123, end: 20151123
  8. OSSOTIDE [Concomitant]
     Indication: PROPHYLAXIS
     Route: 041
     Dates: start: 20151123, end: 20151123
  9. DEXAMETHASONE. [Suspect]
     Active Substance: DEXAMETHASONE
     Dosage: .5 MICROGRAM
     Route: 065
     Dates: start: 20151123
  10. CALCITRIOL. [Concomitant]
     Active Substance: CALCITRIOL
     Indication: OSTEOPOROSIS
     Route: 048
     Dates: start: 20131028
  11. HUMAN IMMUNOGLOBULIN [Concomitant]
     Active Substance: HUMAN IMMUNOGLOBULIN G
     Indication: IMMUNISATION
     Dosage: 100 MILLIGRAM
     Route: 041
     Dates: start: 20151123, end: 20151123
  12. CC-5013 [Suspect]
     Active Substance: LENALIDOMIDE
     Dosage: 125 IU (INTERNATIONAL UNIT)
     Route: 048
     Dates: end: 20151129
  13. CALCIUM CARBONATE. [Concomitant]
     Active Substance: CALCIUM CARBONATE
     Indication: OSTEOPOROSIS
     Route: 048
     Dates: start: 20131028

REACTIONS (2)
  - Lung neoplasm malignant [Recovered/Resolved]
  - Gingivitis [Not Recovered/Not Resolved]

NARRATIVE: CASE EVENT DATE: 20151125
